FAERS Safety Report 8304717 (Version 2)
Quarter: 2013Q3

REPORT INFORMATION
  Report Type: Report from Study
  Country: IT (occurrence: IT)
  Receive Date: 20111221
  Receipt Date: 20130807
  Transmission Date: 20140515
  Serious: Yes (Hospitalization)
  Sender: FDA-Public Use
  Company Number: IT-ROCHE-1023202

PATIENT
  Age: 73 Year
  Sex: Female
  Weight: 83 kg

DRUGS (4)
  1. RANIBIZUMAB [Suspect]
     Indication: DIABETIC RETINAL OEDEMA
     Dosage: INTRVETREAL INJECTION, LAST DOSE PRIOR TO SAE WAS ON 26/OCT/2011
     Route: 050
     Dates: start: 20110324
  2. TORASEMIDE [Concomitant]
     Route: 065
     Dates: start: 2006, end: 20111201
  3. PLAUNAC [Concomitant]
     Route: 065
     Dates: start: 2006, end: 20111201
  4. GLIBOMET [Concomitant]
     Route: 065
     Dates: start: 1996, end: 20111201

REACTIONS (1)
  - Transient ischaemic attack [Recovered/Resolved]
